FAERS Safety Report 7471264-5 (Version None)
Quarter: 2011Q2

REPORT INFORMATION
  Report Type: 
  Country: None (occurrence: None)
  Receive Date: 20110510
  Receipt Date: 20110505
  Transmission Date: 20111010
  Serious: Yes (Other)
  Sender: FDA-Public Use
  Company Number: RU-PFIZER INC-2011056301

PATIENT
  Age: 44 Year
  Sex: Female

DRUGS (8)
  1. CONCOR [Concomitant]
     Indication: HYPERTENSION
     Dosage: 5 MG, 1X/DAY
     Route: 048
     Dates: start: 20110101, end: 20110101
  2. QUINAPRIL HCL [Suspect]
     Dosage: 10 MG, 2X/DAY
     Dates: start: 20110324
  3. HYPOTHIAZID [Concomitant]
     Indication: HYPERTENSION
  4. LINEX [Concomitant]
     Indication: DISBACTERIOSIS
     Dosage: 2 DF, 3X/DAY
     Route: 048
     Dates: start: 20100101
  5. QUINAPRIL HCL [Suspect]
     Indication: HYPERTENSION
     Dosage: 10 MG, 2X/DAY
     Route: 048
     Dates: start: 20101201, end: 20110316
  6. PANANGIN [Concomitant]
     Indication: SUPPLEMENTATION THERAPY
     Dosage: 1 DF, ALTERNATE DAY
     Route: 048
     Dates: start: 20101201
  7. HYPOTHIAZID [Concomitant]
     Indication: DYSURIA
     Dosage: 12.5 MG, AS NEEDED (1-2 TIMES PER WEEK)
     Route: 048
     Dates: end: 20110301
  8. LOPERAMIDE [Concomitant]
     Indication: DIARRHOEA
     Dosage: UNK, AS NEEDED
     Route: 048
     Dates: start: 20100101

REACTIONS (8)
  - GASTRIC MUCOSAL HYPERTROPHY [None]
  - OEDEMA PERIPHERAL [None]
  - PANCREATITIS [None]
  - GASTRIC ULCER [None]
  - BLOOD PRESSURE INCREASED [None]
  - REFLUX OESOPHAGITIS [None]
  - INCREASED APPETITE [None]
  - WEIGHT INCREASED [None]
